FAERS Safety Report 4851797-8 (Version None)
Quarter: 2005Q4

REPORT INFORMATION
  Report Type: 
  Country: None (occurrence: None)
  Receive Date: 20051209
  Receipt Date: 20051128
  Transmission Date: 20060501
  Serious: Yes (Hospitalization)
  Sender: FDA-Public Use
  Company Number: 2005131443

PATIENT
  Age: 61 Year
  Sex: Female
  Weight: 90 kg

DRUGS (4)
  1. LYRICA [Suspect]
     Indication: NEURALGIA
     Dosage: 150 MG, ORAL
     Route: 048
     Dates: start: 20050828, end: 20050901
  2. MARCUMAR [Concomitant]
  3. PANTOPRAZOLE SODIUM [Concomitant]
  4. BENALAPRIL (ENALAPRIL0 [Concomitant]

REACTIONS (4)
  - DERMATITIS BULLOUS [None]
  - DERMATOMYOSITIS [None]
  - MUSCULAR WEAKNESS [None]
  - SKIN DISCOLOURATION [None]
